FAERS Safety Report 8317291-7 (Version None)
Quarter: 2012Q1

REPORT INFORMATION
  Report Type: 
  Country: None (occurrence: None)
  Receive Date: 20120315
  Receipt Date: 20110412
  Transmission Date: 20120608
  Serious: Yes (Other)
  Sender: FDA-Public Use
  Company Number: PHHY2010US84882

PATIENT
  Age: 38 Year
  Sex: Female

DRUGS (1)
  1. GILENYA [Suspect]
     Indication: MULTIPLE SCLEROSIS
     Dosage: 0.5 MG, QD, ORAL
     Route: 048

REACTIONS (4)
  - MULTIPLE SCLEROSIS RELAPSE [None]
  - MIGRAINE [None]
  - DRUG INEFFECTIVE [None]
  - OPTIC NERVE DISORDER [None]
